FAERS Safety Report 5646342-3 (Version None)
Quarter: 2008Q1

REPORT INFORMATION
  Report Type: 
  Country: None (occurrence: None)
  Receive Date: 20080227
  Receipt Date: 20080227
  Transmission Date: 20080703
  Serious: Yes (Other)
  Sender: FDA-Public Use
  Company Number: None

PATIENT
  Age: 46 Year
  Sex: Female
  Weight: 53.0709 kg

DRUGS (1)
  1. LYRICA [Suspect]
     Indication: SCIATICA
     Dosage: 25MG QHS PO
     Route: 048
     Dates: start: 20080222, end: 20080223

REACTIONS (2)
  - CONFUSIONAL STATE [None]
  - NIGHTMARE [None]
